FAERS Safety Report 8102893-3 (Version None)
Quarter: 2012Q1

REPORT INFORMATION
  Report Type: 
  Country: None (occurrence: None)
  Receive Date: 20120201
  Receipt Date: 20120130
  Transmission Date: 20120608
  Serious: Yes (Death, Hospitalization, Other)
  Sender: FDA-Public Use
  Company Number: US-JNJFOC-20111207769

PATIENT
  Sex: Female
  Weight: 48.99 kg

DRUGS (13)
  1. PREVACID [Concomitant]
     Indication: VOMITING
     Route: 048
  2. ONDANSETRON HCL [Concomitant]
     Indication: NAUSEA
     Route: 060
  3. BENADRYL [Concomitant]
     Indication: NAUSEA
     Route: 048
  4. PREVACID [Concomitant]
     Indication: NAUSEA
     Route: 048
  5. REGLAN [Concomitant]
     Indication: NAUSEA
     Route: 048
  6. DOXIL [Suspect]
     Indication: UTERINE CANCER
     Route: 042
     Dates: start: 20110518, end: 20110615
  7. METHADONE HCL [Concomitant]
     Indication: PAIN
     Route: 048
  8. DECADRON [Concomitant]
     Indication: NAUSEA
     Route: 048
  9. DOXIL [Suspect]
     Route: 042
     Dates: start: 20110713, end: 20110810
  10. DOXIL [Suspect]
     Route: 042
     Dates: start: 20110907, end: 20111005
  11. COUMADIN [Concomitant]
     Indication: THROMBOSIS
     Route: 048
  12. DILAUDID [Concomitant]
     Indication: PAIN
     Route: 048
  13. FENTANYL CITRATE [Concomitant]
     Indication: PAIN
     Route: 065

REACTIONS (10)
  - FLUID RETENTION [None]
  - HAEMORRHOIDS [None]
  - HAEMATOMA [None]
  - OFF LABEL USE [None]
  - PLEURAL EFFUSION [None]
  - DIVERTICULITIS [None]
  - THROMBOSIS [None]
  - UTERINE CANCER [None]
  - INTESTINAL OBSTRUCTION [None]
  - METASTASIS [None]
